FAERS Safety Report 5851468-5 (Version None)
Quarter: 2008Q3

REPORT INFORMATION
  Report Type: 
  Country: None (occurrence: None)
  Receive Date: 20080820
  Receipt Date: 20080815
  Transmission Date: 20090109
  Serious: Yes (Other)
  Sender: FDA-Public Use
  Company Number: US-ABBOTT-08P-163-0471107-00

PATIENT
  Age: 31 Year
  Sex: Female

DRUGS (4)
  1. NORVIR [Suspect]
     Indication: ANTIRETROVIRAL THERAPY
     Dates: start: 20071113
  2. ATAZANAVIR SULFATE [Suspect]
     Indication: ANTIRETROVIRAL THERAPY
     Dates: start: 20060630, end: 20071113
  3. ATAZANAVIR SULFATE [Suspect]
     Dates: start: 20071113
  4. EMTRICITABINE [Suspect]
     Indication: ANTIRETROVIRAL THERAPY
     Dates: start: 20060630

REACTIONS (1)
  - ABORTION SPONTANEOUS [None]
